FAERS Safety Report 24760896 (Version 1)
Quarter: 2024Q4

REPORT INFORMATION
  Report Type: Spontaneous
  Country: CN (occurrence: CN)
  Receive Date: 20241220
  Receipt Date: 20241220
  Transmission Date: 20250114
  Serious: Yes (Other)
  Sender: GUERBET
  Company Number: CN-GUERBET-CN-20200006

PATIENT

DRUGS (1)
  1. LIPIODOL [Suspect]
     Active Substance: ETHIODIZED OIL
     Indication: Transcatheter arterial chemoembolisation
     Route: 013

REACTIONS (3)
  - Pulmonary embolism [Unknown]
  - Acute lung injury [Unknown]
  - Product use in unapproved indication [Unknown]
